FAERS Safety Report 8223012-9 (Version None)
Quarter: 2012Q1

REPORT INFORMATION
  Report Type: 
  Country: None (occurrence: None)
  Receive Date: 20120320
  Receipt Date: 20120314
  Transmission Date: 20120608
  Serious: Yes (Other)
  Sender: FDA-Public Use
  Company Number: JP-VERTEX PHARMACEUTICALS INC.-AE-2012-003747

PATIENT
  Age: 66 Year
  Sex: Female

DRUGS (9)
  1. TELAVIC (TELAPREVIR) [Suspect]
     Indication: HEPATITIS C
     Route: 048
     Dates: start: 20120120
  2. REBETOL [Concomitant]
     Indication: HEPATITIS C
     Route: 048
     Dates: start: 20120120, end: 20120203
  3. REBETOL [Concomitant]
     Route: 048
     Dates: start: 20120204, end: 20120210
  4. REBETOL [Concomitant]
     Route: 048
     Dates: start: 20120218
  5. REBETOL [Concomitant]
     Route: 048
     Dates: start: 20120211, end: 20120217
  6. SENNOSIDE [Concomitant]
     Route: 048
  7. FAMOTIDINE [Concomitant]
     Route: 048
  8. LEVOFLOXACIN [Concomitant]
     Route: 047
  9. PEG-INTRON [Concomitant]
     Indication: HEPATITIS C
     Route: 058
     Dates: start: 20120120

REACTIONS (1)
  - LOSS OF CONSCIOUSNESS [None]
